FAERS Safety Report 8506240 (Version 2)
Quarter: 2013Q1

REPORT INFORMATION
  Report Type: Spontaneous
  Country: GB (occurrence: None)
  Receive Date: 20120406
  Receipt Date: 20130116
  Transmission Date: 20140127
  Serious: Yes (Other)
  Sender: FDA-Public Use
  Company Number: TUK2012A00072

PATIENT
  Age: 66 Year
  Sex: Male

DRUGS (6)
  1. PIOGLITAZONE HYDROCHLORIDE (PIOGLITAZONE HYDROCHLORIDE) [Suspect]
     Indication: DIABETES MELLITUS
     Dosage: 30 MG (30 MG,1 IN 1 D) ORAL
     Route: 048
     Dates: start: 20071023, end: 20111124
  2. FUROSEMIDE (FUROSEMIDE) [Concomitant]
  3. GLUCOPHAGE (METFORMIN HYDROCHLORIDE) [Concomitant]
  4. JANUVIA [Concomitant]
  5. RAMIPRIL [Concomitant]
  6. RANITIDINE HYDROCHLORIDE [Concomitant]

REACTIONS (2)
  - Bladder neoplasm [None]
  - Neoplasm malignant [None]
